FAERS Safety Report 6046691-3 (Version None)
Quarter: 2009Q1

REPORT INFORMATION
  Report Type: 
  Country: None (occurrence: None)
  Receive Date: 20090122
  Receipt Date: 20081230
  Transmission Date: 20090719
  Serious: No
  Sender: FDA-Public Use
  Company Number: US-BAYER-200910005BCC

PATIENT
  Age: 47 Year
  Sex: Male
  Weight: 77 kg

DRUGS (1)
  1. ALEVE [Suspect]
     Indication: PAIN
     Dosage: TOTAL DAILY DOSE: 440 MG  UNIT DOSE: 220 MG
     Route: 048
     Dates: start: 20060101, end: 20081229

REACTIONS (1)
  - BLOOD URINE PRESENT [None]
